FAERS Safety Report 7371300-0 (Version None)
Quarter: 2011Q1

REPORT INFORMATION
  Report Type: 
  Country: None (occurrence: None)
  Receive Date: 20110324
  Receipt Date: 20110314
  Transmission Date: 20110831
  Serious: Yes (Hospitalization, Other)
  Sender: FDA-Public Use
  Company Number: US-JNJFOC-20110307113

PATIENT
  Sex: Female
  Weight: 120.66 kg

DRUGS (4)
  1. DURAGESIC-50 [Suspect]
     Route: 062
  2. DIOVAN [Concomitant]
     Indication: HYPERTENSION
     Route: 048
  3. DURAGESIC-50 [Suspect]
     Indication: BACK PAIN
     Route: 062
  4. TOPAMAX [Suspect]
     Indication: NEURALGIA
     Route: 048

REACTIONS (9)
  - HYPOTHYROIDISM [None]
  - DEPRESSION [None]
  - NECK PAIN [None]
  - BLOOD CHOLESTEROL INCREASED [None]
  - GASTROOESOPHAGEAL REFLUX DISEASE [None]
  - WEIGHT DECREASED [None]
  - ALOPECIA [None]
  - OFF LABEL USE [None]
  - MUSCLE SPASMS [None]
